FAERS Safety Report 8452291-8 (Version None)
Quarter: 2012Q2

REPORT INFORMATION
  Report Type: 
  Country: None (occurrence: None)
  Receive Date: 20120620
  Receipt Date: 20120608
  Transmission Date: 20120825
  Serious: Yes (Hospitalization)
  Sender: FDA-Public Use
  Company Number: JP-ELI_LILLY_AND_COMPANY-JP201206001039

PATIENT
  Age: 77 Year
  Sex: Female

DRUGS (3)
  1. FORTEO [Suspect]
     Dosage: UNK
     Route: 058
     Dates: start: 20120201
  2. ALFAROL [Concomitant]
     Route: 048
  3. BUPRENORPHINE [Concomitant]
     Route: 062

REACTIONS (2)
  - DECREASED APPETITE [None]
  - NAUSEA [None]
